FAERS Safety Report 9378470 (Version 2)
Quarter: 2013Q3

REPORT INFORMATION
  Report Type: Spontaneous
  Country: US (occurrence: US)
  Receive Date: 20130702
  Receipt Date: 20130703
  Transmission Date: 20140515
  Serious: No
  Sender: FDA-Public Use
  Company Number: US-009507513-1306USA014586

PATIENT
  Sex: Female

DRUGS (4)
  1. AFRIN NO DRIP SEVERE CONGESTION [Suspect]
     Indication: PRODUCT USED FOR UNKNOWN INDICATION
     Dosage: UNK, UNKNOWN
     Route: 045
  2. AFRIN NO DRIP SEVERE CONGESTION [Suspect]
     Dosage: UNK, UNKNOWN
     Route: 045
  3. AFRIN NO DRIP SEVERE CONGESTION [Suspect]
     Dosage: UNK, UNKNOWN
     Route: 045
  4. AFRIN NO DRIP SEVERE CONGESTION [Suspect]
     Dosage: UNK, UNKNOWN
     Route: 045

REACTIONS (4)
  - Dysphonia [Unknown]
  - Dyspnoea [Unknown]
  - Cough [Unknown]
  - Malaise [Unknown]
